FAERS Safety Report 20834887 (Version 1)
Quarter: 2022Q2

REPORT INFORMATION
  Report Type: 
  Country: US (occurrence: US)
  Receive Date: 20220516
  Receipt Date: 20220516
  Transmission Date: 20220721
  Serious: Yes (Other)
  Sender: FDA-Public Use
  Company Number: US-MannKind Corporation-2022MK000120

PATIENT
  Age: 72 Year
  Sex: Male

DRUGS (4)
  1. AFREZZA [Suspect]
     Active Substance: INSULIN HUMAN
     Indication: Diabetes mellitus
     Dosage: 8-12 UNITS BEFORE MEALS
     Dates: start: 20220110
  2. AFREZZA [Suspect]
     Active Substance: INSULIN HUMAN
     Dosage: 8-12 UNITS BEFORE MEALS
     Dates: start: 20220110
  3. BASAGLAR [Concomitant]
     Active Substance: INSULIN GLARGINE
     Indication: Diabetes mellitus
  4. OXYCODONE [Concomitant]
     Active Substance: OXYCODONE
     Indication: Product used for unknown indication

REACTIONS (2)
  - Rib fracture [Unknown]
  - Contusion [Unknown]
